FAERS Safety Report 12875480 (Version 2)
Quarter: 2016Q4

REPORT INFORMATION
  Report Type: Spontaneous
  Country: US (occurrence: US)
  Receive Date: 20161024
  Receipt Date: 20161119
  Transmission Date: 20170207
  Serious: No
  Sender: FDA-Public Use
  Company Number: US-B.I. PHARMACEUTICALS,INC./RIDGEFIELD-2016-BI-065193

PATIENT
  Age: 69 Year
  Sex: Male

DRUGS (3)
  1. JENTADUETO [Suspect]
     Active Substance: LINAGLIPTIN\METFORMIN HYDROCHLORIDE
     Indication: TYPE 2 DIABETES MELLITUS
     Dosage: FORM STRENGTH: 2.5 MG / 500 MG; DAILY DOSE: 2.5 / 500 MG
     Route: 048
     Dates: start: 201606, end: 201606
  2. DIAVAN [Concomitant]
     Active Substance: ASCORBIC ACID\CHROMIUM\SELENIUM\VANADYL SULFATE
     Indication: HYPERTENSION
     Dosage: FORM STRENGTH: 320/12.5MG; DAILY DOSE: 320/ 12.5 MG
     Route: 048
     Dates: start: 2006
  3. NORVASC [Concomitant]
     Active Substance: AMLODIPINE BESYLATE
     Indication: HYPERTENSION
     Route: 048
     Dates: start: 2006

REACTIONS (3)
  - Blister [Recovered/Resolved]
  - Pruritus [Recovered/Resolved]
  - Rash [Recovered/Resolved]

NARRATIVE: CASE EVENT DATE: 201606
